FAERS Safety Report 5585426-5 (Version None)
Quarter: 2008Q1

REPORT INFORMATION
  Report Type: 
  Country: None (occurrence: None)
  Receive Date: 20080109
  Receipt Date: 20080103
  Transmission Date: 20080703
  Serious: Yes (Other)
  Sender: FDA-Public Use
  Company Number: GB-BAYER-200711276BNE

PATIENT
  Age: 53 Year
  Sex: Female
  Weight: 58 kg

DRUGS (2)
  1. ANGELIQ [Suspect]
     Indication: DRUG USE FOR UNKNOWN INDICATION
     Dates: start: 20070501
  2. ANGELIQ [Suspect]
     Dates: start: 20070401, end: 20070101

REACTIONS (7)
  - ENERGY INCREASED [None]
  - ORTHOSTATIC HYPOTENSION [None]
  - POLYURIA [None]
  - PREMENSTRUAL SYNDROME [None]
  - SYNCOPE [None]
  - VAGINAL HAEMORRHAGE [None]
  - WEIGHT DECREASED [None]
